FAERS Safety Report 9375124 (Version 2)
Quarter: 2013Q3

REPORT INFORMATION
  Report Type: Spontaneous
  Country: JP (occurrence: JP)
  Receive Date: 20130628
  Receipt Date: 20130710
  Transmission Date: 20140515
  Serious: Yes (Life-Threatening, Hospitalization, Disabling)
  Sender: FDA-Public Use
  Company Number: JP-ELI_LILLY_AND_COMPANY-JP201306008569

PATIENT
  Age: 62 Year
  Sex: Male
  Weight: 48 kg

DRUGS (5)
  1. CYMBALTA [Suspect]
     Indication: NEUROPATHY PERIPHERAL
     Dosage: 20 MG, QD
     Route: 048
     Dates: start: 20130616, end: 20130619
  2. ZYVOX [Suspect]
     Indication: LIVER ABSCESS
     Dosage: 600 MG, BID
     Route: 042
     Dates: start: 20130610, end: 20130622
  3. OMEGACIN                                /JPN/ [Concomitant]
     Indication: LIVER ABSCESS
     Dosage: 0.3 G, BID
     Route: 042
     Dates: start: 20130610, end: 20130622
  4. FUNGUARD [Concomitant]
     Indication: LIVER ABSCESS
     Dosage: 150 MG, QD
     Route: 042
     Dates: start: 20130610
  5. CELECOX [Concomitant]
     Indication: NEUROPATHY PERIPHERAL
     Dosage: 200 MG, BID
     Route: 048
     Dates: start: 20130616, end: 20130619

REACTIONS (2)
  - Cerebral infarction [Recovered/Resolved with Sequelae]
  - Off label use [Recovered/Resolved]
